FAERS Safety Report 20840146 (Version 1)
Quarter: 2022Q2

REPORT INFORMATION
  Report Type: Spontaneous
  Country: CN (occurrence: CN)
  Receive Date: 20220517
  Receipt Date: 20220517
  Transmission Date: 20220721
  Serious: Yes (Death, Hospitalization, Other)
  Sender: FDA-Public Use
  Company Number: CN-LAURUS LABS LIMITED-2022LAU000003

PATIENT
  Age: 29 Year
  Sex: Female

DRUGS (7)
  1. HYDROXYCHLOROQUINE [Suspect]
     Active Substance: HYDROXYCHLOROQUINE
     Indication: Antiphospholipid syndrome
     Dosage: 100 MILLIGRAM, TID
     Route: 065
  2. ASPIRIN [Concomitant]
     Active Substance: ASPIRIN
     Indication: Antiphospholipid syndrome
     Dosage: 25 MILLIGRAM, TID
     Route: 048
  3. CYCLOSPORINE [Concomitant]
     Active Substance: CYCLOSPORINE
     Indication: Antiphospholipid syndrome
     Dosage: 50 MILLIGRAM, TID
     Route: 065
  4. PREDNISONE [Concomitant]
     Active Substance: PREDNISONE
     Indication: Antiphospholipid syndrome
     Dosage: 7.5 MILLIGRAM, QD
     Route: 048
  5. PREDNISONE [Concomitant]
     Active Substance: PREDNISONE
     Dosage: 10 MILLIGRAM, BID
     Route: 048
  6. PREDNISONE [Concomitant]
     Active Substance: PREDNISONE
     Dosage: 20 UNK
     Route: 048
  7. DYDROGESTERONE [Concomitant]
     Active Substance: DYDROGESTERONE
     Indication: Vaginal haemorrhage
     Dosage: 10 MILLIGRAM, TID
     Route: 065

REACTIONS (3)
  - Impetigo herpetiformis [Recovered/Resolved]
  - Stillbirth [Fatal]
  - Product use in unapproved indication [Unknown]
